FAERS Safety Report 7531241-2 (Version None)
Quarter: 2011Q2

REPORT INFORMATION
  Report Type: 
  Country: None (occurrence: None)
  Receive Date: 20110608
  Receipt Date: 20110106
  Transmission Date: 20111010
  Serious: Yes (Life-Threatening, Hospitalization, Other)
  Sender: FDA-Public Use
  Company Number: US-BAYER-201022780NA

PATIENT
  Age: 44 Year
  Sex: Female
  Weight: 71.655 kg

DRUGS (32)
  1. CEFAZOLIN [Concomitant]
     Indication: INFECTION PROPHYLAXIS
     Dosage: UNK
     Dates: start: 20080331, end: 20080401
  2. MELOXICAM [Concomitant]
     Dosage: UNK
     Dates: start: 20091201
  3. DOCUSATE SODIUM [Concomitant]
     Indication: CONSTIPATION
     Dosage: UNK
     Dates: start: 20080407
  4. ZOLPIDEM [Concomitant]
     Indication: INSOMNIA
     Dosage: 10 MG, UNK
     Route: 048
     Dates: start: 20080328
  5. DROPERIDOL [Concomitant]
     Indication: NAUSEA
     Dosage: UNK
     Dates: start: 20080331, end: 20080403
  6. MAALOX PLUS [Concomitant]
     Indication: ABDOMINAL DISCOMFORT
     Dosage: UNK
     Dates: start: 20080331, end: 20080403
  7. OXYCODONE HCL [Concomitant]
     Indication: PAIN
     Dosage: UNK
     Dates: start: 20080331, end: 20080403
  8. VICODIN [Concomitant]
     Indication: PAIN
     Dosage: UNK
     Dates: start: 20080331, end: 20080403
  9. PROCHLORPERAZINE TAB [Concomitant]
     Indication: NAUSEA
     Dosage: 10 MG, QID
     Route: 048
     Dates: start: 20080404
  10. LORAZEPAM [Concomitant]
     Indication: ANXIETY
     Dosage: 0.5 MG, UNK
     Route: 048
     Dates: start: 20080328
  11. OXYCODONE HCL AND ACETAMINOPHEN [Concomitant]
     Dosage: UNK
     Dates: start: 20080403
  12. ACETAMINOPHEN [Concomitant]
     Indication: PAIN
     Dosage: UNK
     Dates: start: 20080331, end: 20080403
  13. WELLBUTRIN SR [Concomitant]
     Dosage: 300 MG, UNK
     Route: 048
     Dates: start: 20050912
  14. MELOXICAM [Concomitant]
     Dosage: UNK
     Dates: start: 20000101
  15. MELOXICAM [Concomitant]
     Dosage: UNK
     Dates: start: 20100701
  16. HYDROCODONE BITARTRATE AND ACETAMINOPHEN [Concomitant]
     Indication: PAIN
     Dosage: UNK
     Dates: start: 20080407
  17. PHENTERMINE [Concomitant]
     Indication: WEIGHT CONTROL
     Dosage: 37.5 MG, UNK
     Dates: start: 20080101
  18. MORPHINE [Concomitant]
     Indication: PAIN
     Dosage: UNK
     Dates: start: 20080331, end: 20080403
  19. OXYCODONE HCL [Concomitant]
     Indication: NAUSEA
  20. YASMIN [Suspect]
     Indication: CONTRACEPTION
     Dosage: UNK
     Dates: start: 20030701, end: 20080401
  21. IBUPROFEN [Concomitant]
     Dosage: UNK MG, UNK
     Dates: start: 20091001
  22. AMBIEN [Concomitant]
     Indication: INSOMNIA
     Dosage: UNK
     Dates: start: 20080101
  23. COMPAZINE [Concomitant]
     Indication: NAUSEA
  24. PHENERGAN HCL [Concomitant]
     Indication: PAIN
     Dosage: UNK
     Dates: start: 20080331, end: 20080403
  25. PERCOCET [Concomitant]
     Indication: PAIN
     Dosage: UNK
     Dates: start: 20080331
  26. RESTORIL [Concomitant]
     Indication: INSOMNIA
     Dosage: UNK
     Dates: start: 20080331, end: 20080403
  27. NAPROXEN [Concomitant]
     Dosage: UNK
     Dates: start: 20000101
  28. COLACE [Concomitant]
     Indication: CONSTIPATION
     Dosage: UNK
     Dates: start: 20080407
  29. ADACEL [Concomitant]
     Dosage: UNK
     Dates: start: 20080124
  30. ZOFRAN [Concomitant]
     Dosage: UNK
     Dates: start: 20091004
  31. IBUPROFEN [Concomitant]
     Dosage: UNK MG, UNK
     Dates: start: 20000101
  32. NAPROXEN [Concomitant]
     Dosage: UNK
     Dates: start: 20091201

REACTIONS (5)
  - CHOLECYSTITIS CHRONIC [None]
  - PAIN [None]
  - PULMONARY EMBOLISM [None]
  - CHOLELITHIASIS [None]
  - DEEP VEIN THROMBOSIS [None]
